FAERS Safety Report 7517171-0 (Version None)
Quarter: 2011Q2

REPORT INFORMATION
  Report Type: 
  Country: None (occurrence: None)
  Receive Date: 20110601
  Receipt Date: 20110525
  Transmission Date: 20111010
  Serious: Yes (Other)
  Sender: FDA-Public Use
  Company Number: US-PFIZER INC-2011113182

PATIENT
  Sex: Female

DRUGS (5)
  1. CLARITHROMYCIN [Suspect]
     Indication: LUNG INFECTION
     Dosage: UNK
  2. PREMPRO [Concomitant]
     Dosage: UNK
  3. LYRICA [Suspect]
     Indication: RESTLESS LEGS SYNDROME
     Dosage: 75 MG, 1X/DAY
  4. FOSAMAX [Suspect]
     Dosage: UNK
  5. IBANDRONATE SODIUM [Suspect]
     Dosage: UNK

REACTIONS (6)
  - LUNG INFECTION [None]
  - MALAISE [None]
  - DRUG DOSE OMISSION [None]
  - PULMONARY HAEMORRHAGE [None]
  - DYSPNOEA [None]
  - BLOOD PRESSURE DECREASED [None]
